FAERS Safety Report 6509554-2 (Version None)
Quarter: 2009Q4

REPORT INFORMATION
  Report Type: 
  Country: None (occurrence: None)
  Receive Date: 20091222
  Receipt Date: 20091214
  Transmission Date: 20100525
  Serious: Yes (Other)
  Sender: FDA-Public Use
  Company Number: US-ROCHE-667227

PATIENT
  Sex: Female
  Weight: 59 kg

DRUGS (4)
  1. CAPECITABINE [Suspect]
     Indication: BREAST CANCER
     Dosage: FREQUENCY REPORTED AS 3 TABLET BID X14 DAYS. INDICATION REPORTED AS 3 TABLET
     Route: 048
     Dates: start: 20090403, end: 20091021
  2. OXYCODONE HCL [Concomitant]
     Indication: PAIN
     Dosage: FREQUENCY: 1-2 TABLET OF 3 HOURS
     Route: 048
     Dates: start: 20080801
  3. ATIVAN [Concomitant]
     Dosage: FREQUENCY: PRN
     Dates: start: 20080601
  4. LIDODERM [Concomitant]
     Route: 061
     Dates: start: 20090801

REACTIONS (1)
  - PLEURAL EFFUSION [None]
